FAERS Safety Report 4673204-0 (Version None)
Quarter: 2005Q2

REPORT INFORMATION
  Report Type: 
  Country: None (occurrence: None)
  Receive Date: 20050525
  Receipt Date: 20041223
  Transmission Date: 20051028
  Serious: No
  Sender: FDA-Public Use
  Company Number: US-GLAXOSMITHKLINE-A0538516A

PATIENT
  Age: 62 Year
  Sex: Male

DRUGS (2)
  1. BACTROBAN [Suspect]
     Indication: SKIN INFECTION
     Dosage: 1APP TWICE PER DAY
     Route: 061
  2. TOPROL-XL [Concomitant]

REACTIONS (2)
  - DYSURIA [None]
  - GROIN PAIN [None]
